FAERS Safety Report 11046413 (Version 1)
Quarter: 2015Q2

REPORT INFORMATION
  Report Type: Report from Study
  Country: FR (occurrence: FR)
  Receive Date: 20150420
  Receipt Date: 20150420
  Transmission Date: 20150821
  Serious: Yes (Death, Hospitalization, Other)
  Sender: FDA-Public Use
  Company Number: FR-ROCHE-1164765

PATIENT
  Age: 63 Year
  Sex: Male

DRUGS (7)
  1. RITUXIMAB [Suspect]
     Active Substance: RITUXIMAB
     Dosage: DAY 15 SECOND INFUSION
     Route: 042
     Dates: start: 20090107
  2. FORTUM [Concomitant]
     Active Substance: CEFTAZIDIME
  3. RITUXIMAB [Suspect]
     Active Substance: RITUXIMAB
     Indication: RHEUMATOID ARTHRITIS
     Dosage: DAY 1, FIRST INFUSION
     Route: 042
     Dates: start: 20081222
  4. RITUXIMAB [Suspect]
     Active Substance: RITUXIMAB
     Dosage: SECOND INFUSION, DAY 15:
     Route: 042
     Dates: start: 20090807, end: 20100203
  5. CIFLOX (FRANCE) [Concomitant]
     Active Substance: CIPROFLOXACIN
  6. RITUXIMAB [Suspect]
     Active Substance: RITUXIMAB
     Dosage: SECOND INFUSION, DAY 1:
     Route: 042
     Dates: start: 20090723
  7. METHOTREXATE [Concomitant]
     Active Substance: METHOTREXATE
     Route: 065

REACTIONS (26)
  - Pulmonary fibrosis [Fatal]
  - Bronchopneumonia [Recovered/Resolved]
  - Pulmonary embolism [Recovered/Resolved]
  - Oral candidiasis [Recovered/Resolved]
  - Cataract operation [Unknown]
  - Multi-organ failure [Fatal]
  - Candida infection [Recovered/Resolved]
  - Haemodynamic instability [Fatal]
  - Hypoxia [Fatal]
  - Acute respiratory failure [Fatal]
  - Pneumonia bacterial [Fatal]
  - Eczema [Unknown]
  - Oral candidiasis [Recovered/Resolved]
  - Embolism [Recovered/Resolved]
  - Telangiectasia [Recovered/Resolved]
  - Thrombocytopenia [Unknown]
  - Purpura [Unknown]
  - Bronchitis [Recovered/Resolved]
  - Nodal arrhythmia [Recovered/Resolved]
  - Interstitial lung disease [Not Recovered/Not Resolved]
  - Pulmonary arterial hypertension [Not Recovered/Not Resolved]
  - Ventricular hypokinesia [Not Recovered/Not Resolved]
  - Shock [Fatal]
  - Superinfection bacterial [Recovered/Resolved]
  - Osteoporotic fracture [Not Recovered/Not Resolved]
  - Cerebellar syndrome [Not Recovered/Not Resolved]

NARRATIVE: CASE EVENT DATE: 200906
